FAERS Safety Report 10487510 (Version 6)
Quarter: 2015Q3

REPORT INFORMATION
  Report Type: Report from Study
  Country: US (occurrence: US)
  Receive Date: 20141001
  Receipt Date: 20150909
  Transmission Date: 20151125
  Serious: Yes (Other)
  Sender: FDA-Public Use
  Company Number: US-SA-2014SA114888

PATIENT
  Age: 56 Year
  Sex: Male

DRUGS (2)
  1. AUBAGIO [Suspect]
     Active Substance: TERIFLUNOMIDE
     Indication: MULTIPLE SCLEROSIS
     Route: 048
  2. AUBAGIO [Suspect]
     Active Substance: TERIFLUNOMIDE
     Indication: MULTIPLE SCLEROSIS
     Route: 048
     Dates: start: 20140722, end: 20140819

REACTIONS (11)
  - Prostatomegaly [Unknown]
  - Fall [Unknown]
  - Cough [Unknown]
  - Arthritis [Unknown]
  - Memory impairment [Not Recovered/Not Resolved]
  - Decreased appetite [Unknown]
  - Hypoaesthesia [Unknown]
  - Blindness unilateral [Not Recovered/Not Resolved]
  - Balance disorder [Not Recovered/Not Resolved]
  - Drug dose omission [Unknown]
  - Movement disorder [Unknown]

NARRATIVE: CASE EVENT DATE: 20140820
